FAERS Safety Report 9096374 (Version 1)
Quarter: 2013Q1

REPORT INFORMATION
  Report Type: Spontaneous
  Country: US (occurrence: None)
  Receive Date: 20130219
  Receipt Date: 20130219
  Transmission Date: 20140127
  Serious: Yes (Death, Other)
  Sender: FDA-Public Use
  Company Number: None

PATIENT
  Age: 42 Year
  Sex: Female
  Weight: 89 kg

DRUGS (2)
  1. VENLAFAXINE HYDROCHLORIDE [Suspect]
     Indication: DEPRESSION
     Dates: start: 20101203
  2. VENLAFAXINE HYDROCHLORIDE [Suspect]
     Indication: ANXIETY
     Dates: start: 20101203

REACTIONS (5)
  - Product substitution issue [None]
  - Drug effect decreased [None]
  - Mood altered [None]
  - Irritability [None]
  - Depression [None]
